FAERS Safety Report 8459733-2 (Version None)
Quarter: 2012Q2

REPORT INFORMATION
  Report Type: 
  Country: None (occurrence: None)
  Receive Date: 20120622
  Receipt Date: 20120619
  Transmission Date: 20120825
  Serious: Yes (Hospitalization)
  Sender: FDA-Public Use
  Company Number: FR-MERCK-1204FRA00015

PATIENT
  Age: 20 Year
  Sex: Female
  Weight: 65 kg

DRUGS (6)
  1. DESLORATADINE [Suspect]
     Route: 048
     Dates: start: 20120301
  2. SINGULAIR [Suspect]
     Route: 048
     Dates: start: 20120301
  3. DESLORATADINE [Suspect]
     Route: 048
  4. SINGULAIR [Suspect]
     Route: 048
  5. BUDESONIDE [Suspect]
     Route: 055
  6. BUDESONIDE [Suspect]
     Route: 055
     Dates: start: 20120301

REACTIONS (2)
  - IDIOPATHIC THROMBOCYTOPENIC PURPURA [None]
  - CONTUSION [None]
